FAERS Safety Report 7700041-2 (Version None)
Quarter: 2011Q3

REPORT INFORMATION
  Report Type: 
  Country: None (occurrence: None)
  Receive Date: 20110822
  Receipt Date: 20110809
  Transmission Date: 20111222
  Serious: Yes (Hospitalization, Other)
  Sender: FDA-Public Use
  Company Number: US-ELI_LILLY_AND_COMPANY-US201108002089

PATIENT
  Sex: Female

DRUGS (16)
  1. AROMASIN [Concomitant]
     Dosage: 1 DF, QD
  2. FOSAMAX [Concomitant]
  3. ASPIRIN [Concomitant]
     Dosage: 81 MG, UNK
  4. PREMARIN [Concomitant]
  5. ZYPREXA [Suspect]
     Dosage: 20 MG, QD
  6. FERROUS SULFATE TAB [Concomitant]
     Dosage: 2 DF, QD
  7. PERCOCET [Concomitant]
  8. ZYPREXA [Suspect]
     Indication: SCHIZOPHRENIA
     Dosage: 10 MG, QD
     Dates: start: 19960101
  9. TEMAZEPAM [Concomitant]
     Dosage: 30 MG, EACH EVENING
  10. LOSARTAN POTASSIUM [Concomitant]
     Indication: BLOOD PRESSURE
     Dosage: 100 MG, UNK
  11. TRAZODONE HCL [Concomitant]
     Indication: SLEEP DISORDER
     Dosage: UNK, EACH EVENING
  12. LUMIGAN [Concomitant]
  13. METFORMIN HCL [Concomitant]
     Dosage: 500 MG, BID
  14. PROPRANOLOL [Concomitant]
     Dosage: UNK, EACH EVENING
  15. SIMVASTATIN [Concomitant]
     Dosage: 20 MG, UNK
  16. TRAMADOL HCL [Concomitant]
     Indication: PAIN
     Dosage: 1 DF, PRN

REACTIONS (24)
  - BIPOLAR DISORDER [None]
  - BLOOD CHOLESTEROL INCREASED [None]
  - FEELING ABNORMAL [None]
  - NIGHTMARE [None]
  - INTENTIONAL DRUG MISUSE [None]
  - WEIGHT INCREASED [None]
  - DIABETES MELLITUS [None]
  - RESTLESS LEGS SYNDROME [None]
  - TACHYPHRENIA [None]
  - HEADACHE [None]
  - MEMORY IMPAIRMENT [None]
  - GAIT DISTURBANCE [None]
  - OSTEOPOROSIS [None]
  - DEMENTIA [None]
  - MYALGIA [None]
  - INSOMNIA [None]
  - DEPRESSION [None]
  - BLOOD PRESSURE [None]
  - HOSPITALISATION [None]
  - BREAST CANCER [None]
  - WEIGHT DECREASED [None]
  - MENTAL IMPAIRMENT [None]
  - ARTHRITIS [None]
  - DELUSION [None]
